FAERS Safety Report 7339755-5 (Version None)
Quarter: 2011Q1

REPORT INFORMATION
  Report Type: 
  Country: None (occurrence: None)
  Receive Date: 20110309
  Receipt Date: 20110121
  Transmission Date: 20110831
  Serious: Yes (Other)
  Sender: FDA-Public Use
  Company Number: US-BAYER-2011-020988

PATIENT

DRUGS (4)
  1. YASMIN [Suspect]
     Indication: CONTRACEPTION
     Dosage: UNK
     Dates: start: 20040101, end: 20071018
  2. LEVOXYL [Concomitant]
     Indication: HYPOTHYROIDISM
  3. LEXAPRO [Concomitant]
     Indication: ANXIETY
  4. YASMIN [Suspect]
     Indication: ACNE

REACTIONS (1)
  - DEEP VEIN THROMBOSIS [None]
